FAERS Safety Report 9432418 (Version 1)
Quarter: 2013Q3

REPORT INFORMATION
  Report Type: Spontaneous
  Country: US (occurrence: None)
  Receive Date: 20130730
  Receipt Date: 20130730
  Transmission Date: 20140515
  Serious: Yes (Other)
  Sender: FDA-Public Use
  Company Number: None

PATIENT
  Age: 62 Year
  Sex: Female
  Weight: 85.73 kg

DRUGS (5)
  1. LISINOPRIL 10MG [Suspect]
     Indication: HYPERTENSION
     Route: 048
     Dates: start: 20130625, end: 20130625
  2. FLUTICASONE PROP 50MG SPRAY [Concomitant]
  3. SIMVASTATIN 20MG LUPIN [Concomitant]
  4. CALCIUM + D 600MG [Concomitant]
  5. TYLENOL EXTRA STRENGTH [Concomitant]

REACTIONS (13)
  - Headache [None]
  - Visual impairment [None]
  - Dizziness [None]
  - Abdominal pain upper [None]
  - Nausea [None]
  - Dysstasia [None]
  - Diarrhoea [None]
  - Vomiting [None]
  - Vertigo [None]
  - Vision blurred [None]
  - Dysphagia [None]
  - Dizziness [None]
  - Dizziness [None]
